FAERS Safety Report 14824889 (Version 1)
Quarter: 2018Q2

REPORT INFORMATION
  Report Type: Report from Study
  Country: None (occurrence: BR)
  Receive Date: 20180430
  Receipt Date: 20180430
  Transmission Date: 20180711
  Serious: Yes (Other)
  Sender: FDA-Public Use
  Company Number: BR-ABBVIE-18K-020-2326204-00

PATIENT
  Age: 70 Year
  Sex: Male
  Weight: 64 kg

DRUGS (5)
  1. NOVOMIX [Concomitant]
     Active Substance: INSULIN ASPART
     Indication: DIABETES MELLITUS
  2. HUMIRA [Suspect]
     Active Substance: ADALIMUMAB
     Indication: RHEUMATOID ARTHRITIS
     Route: 058
     Dates: start: 20120721
  3. HUMIRA [Suspect]
     Active Substance: ADALIMUMAB
     Route: 058
  4. DEFLAZACORT [Concomitant]
     Active Substance: DEFLAZACORT
     Indication: PAIN
  5. REVANGE [Concomitant]
     Indication: PAIN

REACTIONS (8)
  - Joint swelling [Unknown]
  - Hepatic steatosis [Recovered/Resolved]
  - Hepatic mass [Unknown]
  - Liver disorder [Unknown]
  - Motion sickness [Not Recovered/Not Resolved]
  - Diabetes mellitus [Unknown]
  - Malaise [Unknown]
  - Swelling [Recovered/Resolved]

NARRATIVE: CASE EVENT DATE: 20180321
